FAERS Safety Report 13935472 (Version 4)
Quarter: 2018Q1

REPORT INFORMATION
  Report Type: Spontaneous
  Country: JP (occurrence: JP)
  Receive Date: 20170905
  Receipt Date: 20180307
  Transmission Date: 20180508
  Serious: Yes (Hospitalization)
  Sender: FDA-Public Use
  Company Number: PHJP2017JP026961

PATIENT
  Age: 61 Year
  Sex: Female
  Weight: 48 kg

DRUGS (6)
  1. PREDONINE [Suspect]
     Active Substance: PREDNISOLONE
     Indication: INTERSTITIAL LUNG DISEASE
     Dosage: 80 MG, UNK
     Route: 065
     Dates: start: 20170829
  2. PREDONINE [Suspect]
     Active Substance: PREDNISOLONE
     Dosage: 40 MG, UNK
     Route: 065
  3. COSENTYX [Suspect]
     Active Substance: SECUKINUMAB
     Indication: PSORIATIC ARTHROPATHY
     Dosage: 300 MG, QW
     Route: 058
     Dates: start: 20170727, end: 20170817
  4. RHEUMATREX [Suspect]
     Active Substance: METHOTREXATE SODIUM
     Indication: PSORIATIC ARTHROPATHY
     Dosage: 8 MG, QW
     Route: 065
     Dates: start: 20170401, end: 20170817
  5. PREDONINE [Suspect]
     Active Substance: PREDNISOLONE
     Dosage: 20 MG, UNK
     Route: 065
  6. BAKTAR [Concomitant]
     Active Substance: SULFAMETHOXAZOLE\TRIMETHOPRIM
     Indication: INTERSTITIAL LUNG DISEASE
     Dosage: 12 DF, UNK
     Route: 048
     Dates: start: 20170829

REACTIONS (5)
  - Septic shock [Recovered/Resolved]
  - Interstitial lung disease [Recovered/Resolved]
  - Dyspnoea [Unknown]
  - Blood pressure decreased [Unknown]
  - Pyrexia [Unknown]

NARRATIVE: CASE EVENT DATE: 20170829
